FAERS Safety Report 7962171-X (Version None)
Quarter: 2011Q4

REPORT INFORMATION
  Report Type: 
  Country: None (occurrence: None)
  Receive Date: 20111207
  Receipt Date: 20111206
  Transmission Date: 20120403
  Serious: Yes (Other)
  Sender: FDA-Public Use
  Company Number: FR-ROCHE-1001826

PATIENT
  Sex: Male

DRUGS (5)
  1. VALACYCLOVIR HYDROCHLORIDE [Concomitant]
     Dosage: BUCCAL TABLET
     Dates: start: 20110321
  2. MABTHERA [Suspect]
     Indication: CHRONIC LYMPHOCYTIC LEUKAEMIA
     Route: 041
     Dates: start: 20110615, end: 20110615
  3. BACTRIM [Concomitant]
     Dosage: BUCCAL TABLET, 400 MG/80 MG
     Dates: start: 20110321
  4. GAVISCON (ALGINIC ACID) [Concomitant]
     Dates: start: 19950101
  5. ZOPICLONE [Concomitant]
     Dates: start: 19800101

REACTIONS (1)
  - BASAL CELL CARCINOMA [None]
